FAERS Safety Report 10258141 (Version 1)
Quarter: 2014Q2

REPORT INFORMATION
  Report Type: Spontaneous
  Country: US (occurrence: US)
  Receive Date: 20140625
  Receipt Date: 20140625
  Transmission Date: 20141212
  Serious: No
  Sender: FDA-Public Use
  Company Number: US-BAYER-2014-095224

PATIENT
  Age: 42 Year
  Sex: Male
  Weight: 65.76 kg

DRUGS (2)
  1. ALEVE CAPLET [Suspect]
     Indication: ANALGESIC THERAPY
     Dosage: 2 DF, ONCE
     Route: 048
     Dates: start: 20140624, end: 20140624
  2. AVONEX [Concomitant]

REACTIONS (1)
  - Drug ineffective [None]
